FAERS Safety Report 5636135-5 (Version None)
Quarter: 2008Q1

REPORT INFORMATION
  Report Type: 
  Country: None (occurrence: None)
  Receive Date: 20080225
  Receipt Date: 20080220
  Transmission Date: 20080703
  Serious: No
  Sender: FDA-Public Use
  Company Number: US-JNJFOC-20080205244

PATIENT
  Sex: Male

DRUGS (4)
  1. INVEGA [Suspect]
     Indication: SCHIZOPHRENIA
     Route: 048
  2. ATIVAN [Concomitant]
     Indication: ANXIETY
     Route: 065
     Dates: start: 20080211, end: 20080218
  3. XANAX [Concomitant]
     Indication: ANXIETY
     Route: 048
     Dates: start: 20080211, end: 20080218
  4. SEROQUEL [Concomitant]
     Indication: INSOMNIA

REACTIONS (2)
  - IRRITABILITY [None]
  - RASH [None]
